FAERS Safety Report 5836502-0 (Version None)
Quarter: 2008Q3

REPORT INFORMATION
  Report Type: 
  Country: None (occurrence: None)
  Receive Date: 20080806
  Receipt Date: 20080806
  Transmission Date: 20090109
  Serious: Yes (Life-Threatening, Hospitalization)
  Sender: FDA-Public Use
  Company Number: None

PATIENT
  Age: 63 Year
  Sex: Male
  Weight: 61.4 kg

DRUGS (1)
  1. CETUXIMAB [Suspect]
     Indication: LARYNGEAL CANCER STAGE III
     Dosage: 752 MG OTHER IV
     Route: 042
     Dates: start: 20080617, end: 20080617

REACTIONS (3)
  - HYPOTENSION [None]
  - RESPIRATORY DEPRESSION [None]
  - TACHYPNOEA [None]
